FAERS Safety Report 6303877-8 (Version None)
Quarter: 2009Q3

REPORT INFORMATION
  Report Type: 
  Country: None (occurrence: None)
  Receive Date: 20090805
  Receipt Date: 20090722
  Transmission Date: 20100115
  Serious: Yes (Hospitalization)
  Sender: FDA-Public Use
  Company Number: 2009PV038694

PATIENT
  Age: 52 Year
  Sex: Female

DRUGS (11)
  1. SYMLINPEN 120 (PRAMLINTIDE ACETATE) PEN-INJECTION [Suspect]
     Indication: TYPE 2 DIABETES MELLITUS
     Dosage: TID; SC
     Route: 058
     Dates: start: 20090519
  2. BYETTA [Concomitant]
  3. LISINOPRIL [Concomitant]
  4. VYTORIN [Concomitant]
  5. LASIX [Concomitant]
  6. POTASSIUM CHLORIDE [Concomitant]
  7. IBUPROFEN [Concomitant]
  8. ASPIRIN [Concomitant]
  9. MULTI-VITAMINS [Concomitant]
  10. ZOCOR [Concomitant]
  11. ZESTRIL [Concomitant]

REACTIONS (4)
  - BLOOD PRESSURE INCREASED [None]
  - HEPATIC CIRRHOSIS [None]
  - HEPATIC STEATOSIS [None]
  - PANCREATITIS [None]
